FAERS Safety Report 8913952 (Version 1)
Quarter: 2012Q4

REPORT INFORMATION
  Report Type: Spontaneous
  Country: US (occurrence: None)
  Receive Date: 20121116
  Receipt Date: 20121116
  Transmission Date: 20130627
  Serious: No
  Sender: FDA-Public Use
  Company Number: None

PATIENT

DRUGS (1)
  1. LITHIUM CARBONATE [Suspect]
     Dates: start: 20121019, end: 20121019

REACTIONS (6)
  - Drug ineffective [None]
  - Insomnia [None]
  - Hypersomnia [None]
  - Fatigue [None]
  - Somnolence [None]
  - Gait disturbance [None]
